FAERS Safety Report 9204007 (Version 1)
Quarter: 2013Q2

REPORT INFORMATION
  Report Type: Report from Study
  Country: FR (occurrence: FR)
  Receive Date: 20130402
  Receipt Date: 20130402
  Transmission Date: 20140414
  Serious: Yes (Hospitalization)
  Sender: FDA-Public Use
  Company Number: PHHY2013FR031764

PATIENT
  Sex: Male
  Weight: 79.9 kg

DRUGS (3)
  1. MYCOPHENOLATE MOFETIL [Suspect]
     Indication: TRANSPLANT REJECTION
     Dosage: 1 G, UNK
     Route: 048
     Dates: start: 20120807
  2. EVEROLIMUS [Suspect]
     Indication: TRANSPLANT REJECTION
     Dosage: 1 MG, UNK
     Route: 048
     Dates: start: 20120918, end: 20121129
  3. SOLUPRED [Suspect]
     Indication: TRANSPLANT REJECTION
     Dosage: 5 MG, UNK
     Route: 048
     Dates: start: 20120807

REACTIONS (1)
  - Neutropenia [Recovered/Resolved]
